FAERS Safety Report 4464750-3 (Version None)
Quarter: 2004Q4

REPORT INFORMATION
  Report Type: 
  Country: None (occurrence: None)
  Receive Date: 20041004
  Receipt Date: 20040715
  Transmission Date: 20050328
  Serious: No
  Sender: FDA-Public Use
  Company Number: 377638

PATIENT
  Age: 44 Year
  Sex: Male

DRUGS (11)
  1. COREG [Suspect]
     Indication: CARDIAC FAILURE
     Dosage: 3.125MG TWICE PER DAY
     Route: 048
     Dates: start: 20020422
  2. MAVIK [Concomitant]
  3. ZOCOR [Concomitant]
  4. ZETAMICIN [Concomitant]
  5. XANAX [Concomitant]
  6. LASIX [Concomitant]
  7. HYDROCODONE [Concomitant]
  8. NITROLINGUAL [Concomitant]
  9. FLONASE [Concomitant]
  10. HISTINEX HC [Concomitant]
  11. SINGULAIR [Concomitant]

REACTIONS (2)
  - HEADACHE [None]
  - LETHARGY [None]
